FAERS Safety Report 8564463-2 (Version None)
Quarter: 2012Q3

REPORT INFORMATION
  Report Type: 
  Country: None (occurrence: None)
  Receive Date: 20120803
  Receipt Date: 20120723
  Transmission Date: 20120928
  Serious: Yes (Death)
  Sender: FDA-Public Use
  Company Number: FR-NOVOPROD-351796

PATIENT
  Weight: 3 kg

DRUGS (6)
  1. NOVORAPID [Suspect]
     Indication: GESTATIONAL DIABETES
     Dosage: FROM 8 IU TO 18 IU BEFORE EACH MEAL
     Route: 064
     Dates: end: 20110816
  2. GLUCOPHAGE [Concomitant]
     Indication: GESTATIONAL DIABETES
     Dosage: 2 G, QD
     Route: 064
     Dates: end: 20110209
  3. AMARYL [Concomitant]
     Indication: GESTATIONAL DIABETES
     Dosage: 5 MG, QD
     Route: 064
     Dates: end: 20110209
  4. INSULATARD NPH HUMAN [Suspect]
     Indication: GESTATIONAL DIABETES
     Dosage: 18 IU, QD
     Route: 064
     Dates: end: 20110209
  5. VICTOZA [Suspect]
     Indication: GESTATIONAL DIABETES
     Dosage: 1.8 MG, QD
     Route: 064
     Dates: end: 20110209
  6. INSULATARD NPH HUMAN [Suspect]
     Dosage: 20 IU IN MORNING, 20 IU IN EVENING
     Route: 064
     Dates: end: 20110816

REACTIONS (6)
  - PLACENTAL INSUFFICIENCY [None]
  - FOETAL EXPOSURE DURING PREGNANCY [None]
  - PANCREATIC ISLETS HYPERPLASIA [None]
  - MICROSOMIA [None]
  - FOETAL DEATH [None]
  - CARDIAC HYPERTROPHY [None]
